FAERS Safety Report 9991648 (Version 2)
Quarter: 2014Q2

REPORT INFORMATION
  Report Type: Spontaneous
  Country: US (occurrence: US)
  Receive Date: 20140310
  Receipt Date: 20140415
  Transmission Date: 20141212
  Serious: Yes (Death, Hospitalization)
  Sender: FDA-Public Use
  Company Number: US-JNJFOC-20140217005

PATIENT
  Age: 95 Year
  Sex: Female
  Weight: 54.43 kg

DRUGS (5)
  1. RISPERDAL [Suspect]
     Indication: AGGRESSION
     Route: 048
     Dates: start: 20131017, end: 20131230
  2. RISPERDAL CONSTA [Suspect]
     Indication: AGGRESSION
     Route: 030
     Dates: start: 20131115, end: 20131228
  3. TRAZODONE [Concomitant]
     Indication: PRODUCT USED FOR UNKNOWN INDICATION
     Route: 048
     Dates: start: 201310
  4. ARICEPT [Concomitant]
     Indication: PRODUCT USED FOR UNKNOWN INDICATION
     Route: 065
  5. DEPAKOTE ER [Concomitant]
     Indication: PRODUCT USED FOR UNKNOWN INDICATION
     Route: 048
     Dates: start: 20131031

REACTIONS (8)
  - Renal failure [Fatal]
  - Fall [Recovered/Resolved]
  - Pneumonia [Unknown]
  - Hypotension [Unknown]
  - Dehydration [Unknown]
  - Glassy eyes [Unknown]
  - Laceration [Unknown]
  - Bedridden [Unknown]
